FAERS Safety Report 19568460 (Version 2)
Quarter: 2021Q3

REPORT INFORMATION
  Report Type: Spontaneous
  Country: DE (occurrence: DE)
  Receive Date: 20210716
  Receipt Date: 20210804
  Transmission Date: 20211014
  Serious: Yes (Other)
  Sender: FDA-Public Use
  Company Number: DE-SA-2021SA231686

PATIENT
  Age: 53 Year
  Sex: Female

DRUGS (1)
  1. DUPILUMAB [Suspect]
     Active Substance: DUPILUMAB
     Indication: DERMATITIS ATOPIC
     Dosage: 300 MG, QW
     Route: 058

REACTIONS (12)
  - Cystitis noninfective [Recovered/Resolved]
  - Terminal ileitis [Recovered/Resolved]
  - Enterovesical fistula [Unknown]
  - Abdominal distension [Recovered/Resolved]
  - Diarrhoea [Recovered/Resolved]
  - Faecaluria [Recovered/Resolved]
  - Vomiting [Recovered/Resolved]
  - Fistula of small intestine [Unknown]
  - Constipation [Recovered/Resolved]
  - Crohn^s disease [Recovered/Resolved]
  - Sepsis [Unknown]
  - Abscess [Unknown]
